FAERS Safety Report 4727472-7 (Version None)
Quarter: 2005Q3

REPORT INFORMATION
  Report Type: 
  Country: None (occurrence: None)
  Receive Date: 20050727
  Receipt Date: 20050727
  Transmission Date: 20060218
  Serious: Yes (Hospitalization)
  Sender: FDA-Public Use
  Company Number: None

PATIENT
  Age: 62 Year
  Sex: Male
  Weight: 109 kg

DRUGS (2)
  1. WARFARIN [Suspect]
     Dosage: 10 MG DILY PO
     Route: 048
  2. COUMADIN [Concomitant]

REACTIONS (6)
  - ANAEMIA [None]
  - GASTRIC CANCER STAGE IV [None]
  - INTERNATIONAL NORMALISED RATIO INCREASED [None]
  - NAUSEA [None]
  - UPPER GASTROINTESTINAL HAEMORRHAGE [None]
  - VOMITING [None]
